FAERS Safety Report 12411577 (Version 4)
Quarter: 2016Q4

REPORT INFORMATION
  Report Type: Spontaneous
  Country: US (occurrence: US)
  Receive Date: 20160527
  Receipt Date: 20161116
  Transmission Date: 20170207
  Serious: No
  Sender: FDA-Public Use
  Company Number: US-GLAXOSMITHKLINE-US2016073508

PATIENT
  Age: 35 Year
  Sex: Female

DRUGS (3)
  1. NICORETTE CINNAMON SURGE [Suspect]
     Active Substance: NICOTINE
     Dosage: UNK
  2. NICORETTE CINNAMON SURGE [Suspect]
     Active Substance: NICOTINE
     Indication: SMOKING CESSATION THERAPY
     Dosage: 4 MG, UNK
  3. NICORETTE CINNAMON SURGE [Suspect]
     Active Substance: NICOTINE
     Dosage: UNK

REACTIONS (3)
  - Aphonia [Recovered/Resolved]
  - Bronchitis [Recovered/Resolved]
  - Product quality issue [Unknown]

NARRATIVE: CASE EVENT DATE: 20160520
